FAERS Safety Report 10221245 (Version 3)
Quarter: 2014Q4

REPORT INFORMATION
  Report Type: Report from Study
  Country: SE (occurrence: SE)
  Receive Date: 20140606
  Receipt Date: 20141031
  Transmission Date: 20150528
  Serious: Yes (Hospitalization, Other)
  Sender: FDA-Public Use
  Company Number: SE-009507513-1406SWE002802

PATIENT
  Age: 74 Year
  Sex: Male
  Weight: 106.1 kg

DRUGS (9)
  1. EZETIMIBE AND SIMVASTATIN [Suspect]
     Active Substance: EZETIMIBE\SIMVASTATIN
     Indication: ACUTE CORONARY SYNDROME
     Dosage: UNK
     Route: 048
     Dates: start: 20070206
  2. WARAN [Concomitant]
     Active Substance: WARFARIN SODIUM
     Dosage: TOTAL DAILY DOSE: 3.75 MG
     Route: 048
     Dates: start: 20070508
  3. LANTUS [Concomitant]
     Active Substance: INSULIN GLARGINE
     Dosage: TOTAL DAILY DOSE: 56 UNITS (FORMULATION: 100U/ML)
     Route: 058
     Dates: start: 20100611
  4. PREDNISOLONE. [Concomitant]
     Active Substance: PREDNISOLONE
     Dosage: TOTAL DAILY DOSE: 5 MG
     Route: 048
     Dates: start: 20100707
  5. FUROSEMIDE. [Suspect]
     Active Substance: FUROSEMIDE
     Dosage: TOTAL DAILY DOSE: 20 MG
     Route: 048
     Dates: start: 20100808
  6. OMEPRAZOLE. [Suspect]
     Active Substance: OMEPRAZOLE
     Dosage: TOTAL DAILY DOSE: 20 MG
     Route: 048
     Dates: start: 20110927
  7. NOVORAPID [Suspect]
     Active Substance: INSULIN ASPART
     Dosage: TOTAL DAILY DOSE: 1 UNIT (FORMULATION 100 U/ML)
     Route: 058
     Dates: start: 20100611
  8. ATACAND [Concomitant]
     Active Substance: CANDESARTAN CILEXETIL
     Dosage: TOTAL DAILY DOSE: 4 MG
     Route: 048
     Dates: start: 20070308
  9. CALCICHEW D3 [Concomitant]
     Active Substance: CALCIUM\CHOLECALCIFEROL
     Dosage: TOTAL DAILY DOSE: 500MG/400 IE
     Route: 048
     Dates: start: 20100619

REACTIONS (1)
  - Colon cancer [Not Recovered/Not Resolved]

NARRATIVE: CASE EVENT DATE: 20131113
